FAERS Safety Report 8801637 (Version 1)
Quarter: 2012Q4

REPORT INFORMATION
  Report Type: Report from Study
  Country: AT (occurrence: AT)
  Receive Date: 20120921
  Receipt Date: 20120921
  Transmission Date: 20130627
  Serious: No
  Sender: FDA-Public Use
  Company Number: AT-BAYER-2012-096267

PATIENT
  Sex: Female

DRUGS (1)
  1. MIRENA [Suspect]
     Dosage: 20 mcg/24hr, CONT
     Route: 015
     Dates: start: 2007

REACTIONS (7)
  - Loss of libido [None]
  - Dyspareunia [None]
  - Breast enlargement [None]
  - Peau d^orange [None]
  - Cutis laxa [None]
  - Mood altered [None]
  - General physical health deterioration [None]
